FAERS Safety Report 18936869 (Version 3)
Quarter: 2021Q1

REPORT INFORMATION
  Report Type: Spontaneous
  Country: JP (occurrence: JP)
  Receive Date: 20210225
  Receipt Date: 20210312
  Transmission Date: 20210420
  Serious: Yes (Hospitalization)
  Sender: FDA-Public Use
  Company Number: JP-ASTRAZENECA-2021A072227

PATIENT
  Age: 70 Year
  Sex: Male

DRUGS (8)
  1. ATORVASTATIN [Concomitant]
     Active Substance: ATORVASTATIN
     Dosage: AFTER FOR 7 DAYS
     Route: 048
     Dates: start: 20120823
  2. GLACTIV [Concomitant]
     Active Substance: SITAGLIPTIN
     Route: 048
     Dates: start: 20101101
  3. SAWACILLIN [Concomitant]
     Active Substance: AMOXICILLIN
     Route: 048
  4. METFORMIN HYDROCHLORIDE. [Concomitant]
     Active Substance: METFORMIN HYDROCHLORIDE
     Dosage: AFTER BREAKFAST AND DINNER FOR 7 DAYS
     Route: 048
     Dates: start: 20181217
  5. JANUVIA [Concomitant]
     Active Substance: SITAGLIPTIN PHOSPHATE
     Dosage: AFTER BREAKFAST AND DINNER
     Route: 048
  6. FORXIGA [Suspect]
     Active Substance: DAPAGLIFLOZIN
     Indication: DIABETES MELLITUS
     Route: 048
     Dates: start: 20180806, end: 202102
  7. VOGLIBOSE [Concomitant]
     Active Substance: VOGLIBOSE
     Dosage: IMMEDIATELY BEFORE BREAKFAST, LUNCH, AND DINNER FOR 7 DAYS
     Route: 048
     Dates: start: 20110324
  8. AMLODIPINE [Concomitant]
     Active Substance: AMLODIPINE BESYLATE
     Dosage: AFTER BREAKFAST AND DINNER FOR 7 DAYS
     Route: 048
     Dates: start: 20101101

REACTIONS (2)
  - Urosepsis [Recovered/Resolved]
  - Atrial fibrillation [Unknown]

NARRATIVE: CASE EVENT DATE: 20210201
